FAERS Safety Report 6821138 (Version 4)
Quarter: 2015Q3

REPORT INFORMATION
  Report Type: Report from Study
  Country: JP (occurrence: JP)
  Receive Date: 20081125
  Receipt Date: 20150825
  Transmission Date: 20151125
  Serious: Yes (Hospitalization)
  Sender: FDA-Public Use
  Company Number: JP-BAXTER-2008BH012617

PATIENT
  Age: 63 Year
  Sex: Male
  Weight: 52.7 kg

DRUGS (19)
  1. ADVATE [Suspect]
     Active Substance: ANTIHEMOPHILIC FACTOR, HUMAN RECOMBINANT
     Indication: SURGERY
     Dosage: 3000 IU, 2X A DAY
     Route: 042
     Dates: start: 20080930, end: 20081001
  2. ADVATE [Suspect]
     Active Substance: ANTIHEMOPHILIC FACTOR, HUMAN RECOMBINANT
     Indication: HAEMOSTASIS
     Dosage: 3000 IU, 1X A DAY
     Route: 042
     Dates: start: 20081002, end: 20081006
  3. PENICILLIN [Concomitant]
     Active Substance: PENICILLIN
     Indication: INFECTION PROPHYLAXIS
     Dosage: 2 G, 2X A DAY
     Route: 042
     Dates: start: 20081007, end: 20081009
  4. SOLETON [Concomitant]
     Active Substance: ZALTOPROFEN
     Indication: POSTOPERATIVE ANALGESIA
     Dosage: 80MILLIGRAM3X A DAY
     Route: 048
     Dates: start: 20081008, end: 20081015
  5. DASEN [Concomitant]
     Indication: POSTOPERATIVE CARE
     Dosage: 10MILLIGRAM3X A DAY
     Route: 048
     Dates: start: 20081008, end: 20081015
  6. GASTER [Concomitant]
     Active Substance: FAMOTIDINE
     Indication: PROPHYLAXIS
     Dosage: 20 MG, 2X A DAY
     Route: 048
     Dates: start: 20081024, end: 20081031
  7. ADVATE [Suspect]
     Active Substance: ANTIHEMOPHILIC FACTOR, HUMAN RECOMBINANT
     Dosage: 3000 IU, 2X A DAY
     Route: 042
     Dates: start: 20081007, end: 20081007
  8. PANSPORIN T [Concomitant]
     Indication: INFECTION PROPHYLAXIS
     Dosage: 200 MG, 3X A DAY
     Route: 048
     Dates: start: 20081010, end: 20081015
  9. PURSENNID [Concomitant]
     Active Substance: SENNOSIDES A AND B
     Indication: CONSTIPATION PROPHYLAXIS
     Dosage: 12 MG, 1X A DAY
     Route: 048
  10. ADVATE [Suspect]
     Active Substance: ANTIHEMOPHILIC FACTOR, HUMAN RECOMBINANT
     Dosage: 2000 IU, 2X A DAY
     Route: 042
     Dates: start: 20081008, end: 20081008
  11. ADVATE [Suspect]
     Active Substance: ANTIHEMOPHILIC FACTOR, HUMAN RECOMBINANT
     Dosage: 2000 IU, 1X A DAY
     Route: 042
     Dates: start: 20081009, end: 20081014
  12. SOLON [Concomitant]
     Active Substance: SOFALCONE
     Indication: GASTRITIS PROPHYLAXIS
     Dosage: 100MILLIGRAM3X A DAY
     Route: 048
     Dates: start: 20081008, end: 20081015
  13. SOLITA-T3 [Concomitant]
     Active Substance: POTASSIUM CHLORIDE\SODIUM CHLORIDE\SODIUM LACTATE
     Indication: PROPHYLAXIS AGAINST DEHYDRATION
     Dosage: 500 ML, 2X A DAY
     Route: 042
     Dates: start: 20081007, end: 20081007
  14. LOXONIN [Concomitant]
     Active Substance: LOXOPROFEN SODIUM
     Indication: OSTEOARTHRITIS
     Dosage: 60 MG, 3X A DAY
     Route: 048
     Dates: start: 20081024, end: 20081031
  15. LACTEC [Concomitant]
     Active Substance: CALCIUM CHLORIDE ANHYDROUS\POTASSIUM CHLORIDE\SODIUM CHLORIDE\SODIUM LACTATE
     Indication: PROPHYLAXIS AGAINST DEHYDRATION
     Dosage: 500ML2X A DAY
     Route: 042
     Dates: start: 20081007, end: 20081007
  16. MOHRUS TAPE [Concomitant]
     Active Substance: KETOPROFEN
     Indication: ANALGESIC THERAPY
     Dosage: UNK, 1X A DAY 1 TAPE
     Route: 061
     Dates: start: 20081008
  17. CEFZON [Concomitant]
     Active Substance: CEFDINIR
     Indication: INFECTION PROPHYLAXIS
     Dosage: 100 MG, 3X A DAY
     Route: 048
     Dates: start: 20081027, end: 20081102
  18. ADVATE [Suspect]
     Active Substance: ANTIHEMOPHILIC FACTOR, HUMAN RECOMBINANT
     Dosage: 1000 IU, 1X A DAY
     Route: 042
     Dates: start: 20081015, end: 20081021
  19. ADVATE [Suspect]
     Active Substance: ANTIHEMOPHILIC FACTOR, HUMAN RECOMBINANT
     Dosage: 2000 IU, AS NEEDED
     Route: 042
     Dates: start: 20081024, end: 20081110

REACTIONS (3)
  - Bleeding time prolonged [Recovered/Resolved]
  - Factor VIII inhibition [Recovered/Resolved]
  - Wound haemorrhage [Recovered/Resolved]

NARRATIVE: CASE EVENT DATE: 200810
